FAERS Safety Report 16462517 (Version 1)
Quarter: 2019Q2

REPORT INFORMATION
  Report Type: Spontaneous
  Country: US (occurrence: US)
  Receive Date: 20190621
  Receipt Date: 20190621
  Transmission Date: 20190711
  Serious: Yes (Other)
  Sender: FDA-Public Use
  Company Number: US-AMGEN-USASP2019095040

PATIENT
  Age: 55 Year
  Sex: Female

DRUGS (4)
  1. CLONAZEPAM. [Concomitant]
     Active Substance: CLONAZEPAM
     Dosage: 1 MILLIGRAM, BID
     Route: 065
  2. PROLIA [Suspect]
     Active Substance: DENOSUMAB
     Indication: OSTEOPOROSIS POSTMENOPAUSAL
     Dosage: 60 MILLIGRAM, Q6MO
     Route: 065
     Dates: start: 201810
  3. METHADONE [Concomitant]
     Active Substance: METHADONE HYDROCHLORIDE
     Dosage: UNK
  4. DILAUDID [Concomitant]
     Active Substance: HYDROMORPHONE HYDROCHLORIDE
     Dosage: (UP TO 3 PER MONTH)
     Route: 065

REACTIONS (17)
  - Gingivitis [Unknown]
  - Vomiting [Unknown]
  - Dyspepsia [Unknown]
  - Aspiration [Unknown]
  - Skin laceration [Unknown]
  - Back pain [Unknown]
  - Anaphylactic shock [Not Recovered/Not Resolved]
  - Loss of consciousness [Unknown]
  - Sinusitis [Unknown]
  - Ear infection [Unknown]
  - Blood pressure fluctuation [Unknown]
  - Jaw disorder [Unknown]
  - Wound infection [Unknown]
  - Insomnia [Unknown]
  - Dyspnoea [Unknown]
  - Dizziness [Unknown]
  - Bone pain [Unknown]

NARRATIVE: CASE EVENT DATE: 2018
